FAERS Safety Report 5808193-6 (Version None)
Quarter: 2008Q3

REPORT INFORMATION
  Report Type: 
  Country: None (occurrence: None)
  Receive Date: 20080709
  Receipt Date: 20080707
  Transmission Date: 20090109
  Serious: Yes (Other)
  Sender: FDA-Public Use
  Company Number: A0736437A

PATIENT
  Age: 60 Year
  Sex: Female

DRUGS (1)
  1. METHYCELLULOSE SUSPENSION SUGAR FREE ORANGE (METHYLCELLULOSE) [Suspect]
     Indication: DRUG USE FOR UNKNOWN INDICATION

REACTIONS (3)
  - ANAL HAEMORRHAGE [None]
  - DEFAECATION URGENCY [None]
  - RECTAL TENESMUS [None]
